FAERS Safety Report 11672468 (Version 1)
Quarter: 2015Q4

REPORT INFORMATION
  Report Type: Spontaneous
  Country: US (occurrence: US)
  Receive Date: 20151027
  Receipt Date: 20151027
  Transmission Date: 20160304
  Serious: No
  Sender: FDA-Public Use
  Company Number: US-ELI_LILLY_AND_COMPANY-US201006006804

PATIENT
  Sex: Female

DRUGS (19)
  1. FORTEO [Suspect]
     Active Substance: TERIPARATIDE
     Dosage: UNK, UNK
  2. LASIX [Concomitant]
     Active Substance: FUROSEMIDE
  3. PROTONIX [Concomitant]
     Active Substance: PANTOPRAZOLE SODIUM
     Indication: DYSPEPSIA
  4. DIURETICS [Concomitant]
     Active Substance: UNSPECIFIED INGREDIENT
  5. CALCIUM [Concomitant]
     Active Substance: CALCIUM
  6. LACTULOSE. [Concomitant]
     Active Substance: LACTULOSE
  7. FORTEO [Suspect]
     Active Substance: TERIPARATIDE
     Indication: OSTEOPOROSIS
     Dosage: 20 UG, DAILY (1/D)
  8. ALDACTONE [Concomitant]
     Active Substance: SPIRONOLACTONE
  9. SANCTURA [Concomitant]
     Active Substance: TROSPIUM CHLORIDE
  10. PERCOCET [Concomitant]
     Active Substance: ACETAMINOPHEN\OXYCODONE HYDROCHLORIDE
  11. OXYGEN. [Concomitant]
     Active Substance: OXYGEN
     Indication: OXYGEN SATURATION ABNORMAL
  12. ANALGESICS [Concomitant]
     Active Substance: UNSPECIFIED INGREDIENT
  13. MAGNESIUM [Concomitant]
     Active Substance: MAGNESIUM
  14. XIFAXAN [Concomitant]
     Active Substance: RIFAXIMIN
  15. ZOLOFT [Concomitant]
     Active Substance: SERTRALINE HYDROCHLORIDE
  16. POTASSIUM [Concomitant]
     Active Substance: POTASSIUM
  17. VITAMIN D [Concomitant]
     Active Substance: CHOLECALCIFEROL
  18. VITAMINS [Concomitant]
     Active Substance: VITAMINS
  19. OXYCONTIN [Concomitant]
     Active Substance: OXYCODONE HYDROCHLORIDE

REACTIONS (5)
  - Bone disorder [Unknown]
  - Oxygen saturation abnormal [Recovering/Resolving]
  - Liver disorder [Unknown]
  - Nerve injury [Not Recovered/Not Resolved]
  - Walking aid user [Unknown]
